FAERS Safety Report 11855261 (Version 2)
Quarter: 2016Q1

REPORT INFORMATION
  Report Type: Report from Study
  Country: TW (occurrence: TW)
  Receive Date: 20151221
  Receipt Date: 20160223
  Transmission Date: 20160526
  Serious: No
  Sender: FDA-Public Use
  Company Number: PHHY2015TW010393

PATIENT
  Age: 72 Year
  Sex: Female

DRUGS (9)
  1. TASIGNA [Suspect]
     Active Substance: NILOTINIB
     Dosage: 300 OT, UNK
     Route: 048
     Dates: start: 20150216, end: 20150316
  2. MOSAPRIDE [Concomitant]
     Active Substance: MOSAPRIDE
     Indication: PROPHYLAXIS
     Dosage: 5 MG, UNK
     Route: 048
     Dates: start: 20140407
  3. TASIGNA [Suspect]
     Active Substance: NILOTINIB
     Dosage: 150 OT, UNK
     Route: 048
     Dates: start: 20150316, end: 20150406
  4. TASIGNA [Suspect]
     Active Substance: NILOTINIB
     Indication: CHRONIC MYELOID LEUKAEMIA
     Dosage: 450 OT, UNK
     Route: 048
     Dates: start: 20140224, end: 20140307
  5. SPIRIVA [Concomitant]
     Active Substance: TIOTROPIUM BROMIDE MONOHYDRATE
     Indication: CHRONIC OBSTRUCTIVE PULMONARY DISEASE
     Dosage: UNK
     Route: 065
     Dates: start: 20140410
  6. SERETIDE [Concomitant]
     Active Substance: FLUTICASONE FUROATE\SALMETEROL XINAFOATE
     Indication: CHRONIC OBSTRUCTIVE PULMONARY DISEASE
     Dosage: UNK
     Route: 055
     Dates: start: 20140410
  7. RANITIDINE [Concomitant]
     Active Substance: RANITIDINE\RANITIDINE HYDROCHLORIDE
     Indication: PROPHYLAXIS
     Dosage: 150 MG, UNK
     Route: 048
     Dates: end: 20140307
  8. OXETACAINE [Concomitant]
     Active Substance: OXETHAZAINE
     Indication: PROPHYLAXIS
     Dosage: 1 DF, UNK
     Route: 048
     Dates: start: 20141230, end: 20150210
  9. HYCOMB [Concomitant]
     Indication: PRODUCT USED FOR UNKNOWN INDICATION
     Dosage: UNK
     Route: 061
     Dates: start: 20140929, end: 20150223

REACTIONS (1)
  - Cachexia [Not Recovered/Not Resolved]

NARRATIVE: CASE EVENT DATE: 20141027
